FAERS Safety Report 23210544 (Version 27)
Quarter: 2025Q3

REPORT INFORMATION
  Report Type: Report from Study
  Country: CA (occurrence: CA)
  Receive Date: 20231121
  Receipt Date: 20250819
  Transmission Date: 20251021
  Serious: Yes (Death, Life-Threatening, Hospitalization, Other)
  Sender: IPSEN BIOPHARMACEUTICALS, INC.
  Company Number: CA-KOREA IPSEN Pharma-2023-14725

PATIENT
  Age: 76 Year
  Sex: Male

DRUGS (14)
  1. LANREOTIDE ACETATE [Suspect]
     Active Substance: LANREOTIDE ACETATE
     Indication: Gastroenteropancreatic neuroendocrine tumour disease
     Dosage: DEEP SUBCUTANEOUS
     Dates: start: 20230605
  2. LANREOTIDE ACETATE [Suspect]
     Active Substance: LANREOTIDE ACETATE
     Dosage: DEEP SUBCUTANEOUS
  3. LANREOTIDE ACETATE [Suspect]
     Active Substance: LANREOTIDE ACETATE
     Dosage: DEEP SC
     Dates: start: 20250120
  4. ATORVASTATIN [Concomitant]
     Active Substance: ATORVASTATIN
     Dosage: 10MG OD
  5. CARVEDILOL [Concomitant]
     Active Substance: CARVEDILOL
     Dosage: 12.5MG BID
  6. ENTRESTO [Concomitant]
     Active Substance: SACUBITRIL\VALSARTAN
     Dosage: 1 TAB BID
  7. GLICLAZIDE [Concomitant]
     Active Substance: GLICLAZIDE
     Dosage: 60MG BID
  8. JARDIANCE [Concomitant]
     Active Substance: EMPAGLIFLOZIN
     Dosage: 10 MG OD
  9. PANTOPRAZOLE [Concomitant]
     Active Substance: PANTOPRAZOLE
     Dosage: 40MG OD
  10. TAMSULOSIN [Concomitant]
     Active Substance: TAMSULOSIN
     Dosage: 0.4MG OD
  11. SPIRONOLACTONE [Concomitant]
     Active Substance: SPIRONOLACTONE
     Dosage: 25MG OD.
  12. JANUMET XR [Concomitant]
     Active Substance: METFORMIN HYDROCHLORIDE\SITAGLIPTIN PHOSPHATE
     Dosage: 2 TABS OD
  13. IVABRADINE HCL [Concomitant]
     Dosage: 5MG BID
  14. ASPIRIN [Concomitant]
     Active Substance: ASPIRIN
     Dosage: 81MG OD

REACTIONS (40)
  - Death [Fatal]
  - Pyrexia [Not Recovered/Not Resolved]
  - Bradycardia [Recovered/Resolved]
  - Urinary tract obstruction [Not Recovered/Not Resolved]
  - Blood potassium increased [Unknown]
  - Blood creatinine increased [Unknown]
  - Prostatic haemorrhage [Not Recovered/Not Resolved]
  - Asthenia [Not Recovered/Not Resolved]
  - Complication associated with device [Not Recovered/Not Resolved]
  - Cardiac failure congestive [Not Recovered/Not Resolved]
  - Blood potassium abnormal [Not Recovered/Not Resolved]
  - Malignant neoplasm progression [Unknown]
  - Cystitis noninfective [Unknown]
  - Faeces pale [Unknown]
  - Injection site mass [Not Recovered/Not Resolved]
  - Diarrhoea [Recovering/Resolving]
  - Faeces discoloured [Recovering/Resolving]
  - Hypoglycaemia [Not Recovered/Not Resolved]
  - Pulmonary mass [Recovered/Resolved]
  - Prostatic disorder [Not Recovered/Not Resolved]
  - Pollakiuria [Not Recovered/Not Resolved]
  - Dysuria [Not Recovered/Not Resolved]
  - Musculoskeletal chest pain [Not Recovered/Not Resolved]
  - Hepatic lesion [Not Recovered/Not Resolved]
  - Fall [Unknown]
  - Skin abrasion [Unknown]
  - Arthralgia [Unknown]
  - Joint swelling [Unknown]
  - Back pain [Unknown]
  - Off label use [Unknown]
  - Malaise [Not Recovered/Not Resolved]
  - Gastrointestinal pain [Not Recovered/Not Resolved]
  - Abdominal pain [Not Recovered/Not Resolved]
  - Weight decreased [Not Recovered/Not Resolved]
  - General physical health deterioration [Not Recovered/Not Resolved]
  - Asthenia [Not Recovered/Not Resolved]
  - Amnesia [Not Recovered/Not Resolved]
  - Injection site pain [Unknown]
  - Fatigue [Unknown]
  - Inappropriate schedule of product administration [Unknown]

NARRATIVE: CASE EVENT DATE: 20230101
